FAERS Safety Report 6451465-5 (Version None)
Quarter: 2009Q4

REPORT INFORMATION
  Report Type: 
  Country: None (occurrence: None)
  Receive Date: 20091123
  Receipt Date: 20090313
  Transmission Date: 20100525
  Serious: No
  Sender: FDA-Public Use
  Company Number: US-BRISTOL-MYERS SQUIBB COMPANY-14543235

PATIENT
  Age: 71 Year
  Sex: Female

DRUGS (4)
  1. AVALIDE [Suspect]
     Indication: OEDEMA PERIPHERAL
     Dosage: TOOK ON 13MAR09 (MORNING);FIRST TABLET.
  2. ZETIA [Concomitant]
  3. PROPRANOLOL HYDROCHLORIDE [Concomitant]
     Dosage: PROPANOLOL SAMPLE TABLETS
  4. LIPITOR [Concomitant]

REACTIONS (3)
  - HEADACHE [None]
  - NAUSEA [None]
  - VOMITING [None]
